FAERS Safety Report 10411886 (Version 1)
Quarter: 2014Q2

REPORT INFORMATION
  Report Type: Spontaneous
  Country: US (occurrence: None)
  Receive Date: 20140604
  Receipt Date: 20140604
  Transmission Date: 20141212
  Serious: Yes (Hospitalization)
  Sender: FDA-Public Use
  Company Number: 163-POMAL-14031300

PATIENT
  Age: 72 Year
  Sex: Female
  Weight: 48.5 kg

DRUGS (10)
  1. POMALYST (POMALIDOMIDE) (CAPSULES) [Suspect]
     Indication: PLASMA CELL MYELOMA
     Dosage: 4 MG, 21 IN 21 D
     Route: 048
     Dates: start: 201402
  2. ACYCLOVIR (ACICLOVIR) (ACICLOVIR) [Concomitant]
  3. ADVIL (IBUPROFEN) [Concomitant]
  4. ALEVE (NAPROXEN SODIUM) [Concomitant]
  5. BENADRYL [Concomitant]
  6. ALLOPURINOL [Concomitant]
  7. DECADRON (DEXAMETHASONE) [Concomitant]
  8. FAMOTIDINE [Concomitant]
  9. MAG-OX (MAGNESIUM OXIDE) [Concomitant]
  10. ONDANSETRON [Concomitant]

REACTIONS (2)
  - Full blood count decreased [None]
  - Infection [None]
